FAERS Safety Report 13978278 (Version 1)
Quarter: 2017Q3

REPORT INFORMATION
  Report Type: Spontaneous
  Country: DE (occurrence: DE)
  Receive Date: 20170915
  Receipt Date: 20170915
  Transmission Date: 20171128
  Serious: Yes (Congenital Anomaly)
  Sender: FDA-Public Use
  Company Number: GXKR2017DE004565

PATIENT
  Sex: Female
  Weight: 2.83 kg

DRUGS (2)
  1. CITALOPRAM [Suspect]
     Active Substance: CITALOPRAM HYDROBROMIDE
     Indication: FOETAL EXPOSURE DURING PREGNANCY
     Dosage: MATERNAL DOSE: 20 MG QD
     Route: 064
     Dates: start: 20160719, end: 20170406
  2. FOLIC ACID. [Concomitant]
     Active Substance: FOLIC ACID
     Indication: FOETAL EXPOSURE DURING PREGNANCY
     Dosage: MATERNAL DOSE
     Route: 064

REACTIONS (2)
  - Craniosynostosis [Not Recovered/Not Resolved]
  - Foetal exposure during pregnancy [Not Recovered/Not Resolved]
